FAERS Safety Report 8088444-0 (Version None)
Quarter: 2012Q1

REPORT INFORMATION
  Report Type: 
  Country: None (occurrence: None)
  Receive Date: 20120128
  Receipt Date: 20110415
  Transmission Date: 20120608
  Serious: No
  Sender: FDA-Public Use
  Company Number: US-ABBOTT-11P-163-0719779-00

PATIENT
  Age: 50 Year
  Sex: Female

DRUGS (5)
  1. LISINOPRIL [Concomitant]
     Indication: HYPERTENSION
     Dosage: 20/25MG DAILY
  2. XOPENEX [Concomitant]
     Indication: ASTHMA
     Dosage: NEBULIZER, TWICE PER DAY, WITH PULMICORT
  3. PULMICORT-100 [Concomitant]
     Indication: ASTHMA
     Dosage: NEBULIZER, TWICE PER DAY
  4. HUMIRA [Suspect]
     Indication: ANKYLOSING SPONDYLITIS
     Dates: start: 20110318
  5. LORTAB [Concomitant]
     Indication: PAIN
     Dosage: EVERY 4 TO 6 HOURS

REACTIONS (9)
  - INJECTION SITE PAPULE [None]
  - PAIN IN EXTREMITY [None]
  - INJECTION SITE PAIN [None]
  - DRUG INEFFECTIVE [None]
  - GROIN PAIN [None]
  - MOBILITY DECREASED [None]
  - BACK PAIN [None]
  - ARTHRALGIA [None]
  - INJECTION SITE INDURATION [None]
